FAERS Safety Report 5754221-6 (Version None)
Quarter: 2008Q2

REPORT INFORMATION
  Report Type: 
  Country: None (occurrence: None)
  Receive Date: 20080530
  Receipt Date: 20080519
  Transmission Date: 20081010
  Serious: Yes (Hospitalization)
  Sender: FDA-Public Use
  Company Number: FR-JNJFOC-20080503709

PATIENT
  Age: 39 Year
  Sex: Male

DRUGS (8)
  1. ARESTAL [Suspect]
     Indication: GASTROENTERITIS VIRAL
     Route: 048
  2. MOTILYO [Suspect]
     Indication: GASTROENTERITIS VIRAL
     Route: 048
  3. IBUPROFENE [Suspect]
     Indication: INFLUENZA LIKE ILLNESS
     Route: 048
  4. MONOZECLAR [Suspect]
     Indication: GASTROENTERITIS VIRAL
     Route: 048
  5. ACETAMINOPHEN [Concomitant]
     Indication: PYREXIA
     Route: 048
  6. BIPROFENID [Concomitant]
     Indication: INFLUENZA LIKE ILLNESS
     Route: 048
  7. TETRAZEPAM [Concomitant]
     Indication: TORTICOLLIS
     Route: 048
  8. PAROXETINE HCL [Concomitant]
     Indication: DRUG USE FOR UNKNOWN INDICATION
     Route: 048

REACTIONS (5)
  - DERMATITIS BULLOUS [None]
  - LEUKOCYTOSIS [None]
  - MYALGIA [None]
  - PYREXIA [None]
  - THROMBOCYTOPENIC PURPURA [None]
